FAERS Safety Report 5037456-X (Version None)
Quarter: 2006Q2

REPORT INFORMATION
  Report Type: 
  Country: None (occurrence: None)
  Receive Date: 20060609
  Receipt Date: 20051209
  Transmission Date: 20061013
  Serious: Yes (Other)
  Sender: FDA-Public Use
  Company Number: 2005167535

PATIENT
  Age: 52 Year
  Sex: Female
  Weight: 61.0995 kg

DRUGS (3)
  1. ELLENCE [Suspect]
     Indication: BREAST CANCER
     Dosage: 100 MG/M2
     Dates: start: 20051201, end: 20051201
  2. CYTOXAN [Concomitant]
  3. FLUOROURACIL [Concomitant]

REACTIONS (3)
  - HYPERSENSITIVITY [None]
  - PRURITUS [None]
  - URTICARIA [None]
